FAERS Safety Report 23411850 (Version 1)
Quarter: 2024Q1

REPORT INFORMATION
  Report Type: Spontaneous
  Country: FR (occurrence: FR)
  Receive Date: 20240117
  Receipt Date: 20240117
  Transmission Date: 20240409
  Serious: Yes (Life-Threatening)
  Sender: FDA-Public Use
  Company Number: None

PATIENT
  Age: 32 Year
  Sex: Female
  Weight: 78 kg

DRUGS (10)
  1. CISATRACURIUM [Suspect]
     Active Substance: CISATRACURIUM
     Indication: General anaesthesia
     Dosage: 10 MILLIGRAM
     Route: 042
     Dates: start: 20231025, end: 20231025
  2. SUFENTANIL [Suspect]
     Active Substance: SUFENTANIL
     Indication: General anaesthesia
     Dosage: 25 MICROGRAM
     Route: 042
     Dates: start: 20231025, end: 20231025
  3. DEXAMETHASONE [Suspect]
     Active Substance: DEXAMETHASONE
     Indication: General anaesthesia
     Dosage: 8 MILLIGRAM,(SOLUTION FOR INJECTION IN AMPOULE)
     Route: 042
     Dates: start: 20231025, end: 20231025
  4. PROPOFOL LIPURO [Suspect]
     Active Substance: PROPOFOL
     Indication: General anaesthesia
     Dosage: 280 MILLIGRAM
     Route: 042
     Dates: start: 20231025, end: 20231025
  5. KETAMINE [Suspect]
     Active Substance: KETAMINE
     Indication: General anaesthesia
     Dosage: 30 MILLIGRAM
     Route: 042
     Dates: start: 20231025, end: 20231025
  6. ACETAMINOPHEN [Concomitant]
     Active Substance: ACETAMINOPHEN
     Dosage: UNK
     Route: 065
  7. CETIRIZINE HYDROCHLORIDE [Concomitant]
     Active Substance: CETIRIZINE HYDROCHLORIDE
     Dosage: UNK
     Route: 065
  8. KETOPROFEN [Concomitant]
     Active Substance: KETOPROFEN
     Dosage: UNK
     Route: 065
  9. ACUPAN [Concomitant]
     Active Substance: NEFOPAM HYDROCHLORIDE
     Dosage: UNK
     Route: 065
  10. LOVENOX [Concomitant]
     Active Substance: ENOXAPARIN SODIUM
     Dosage: UNK
     Route: 065

REACTIONS (1)
  - Anaphylactic shock [Recovered/Resolved]

NARRATIVE: CASE EVENT DATE: 20231025
